FAERS Safety Report 9529455 (Version 7)
Quarter: 2015Q4

REPORT INFORMATION
  Report Type: Report from Study
  Country: CA (occurrence: CA)
  Receive Date: 20130917
  Receipt Date: 20151218
  Transmission Date: 20160305
  Serious: Yes (Hospitalization)
  Sender: FDA-Public Use
  Company Number: PHHY2012CA045191

PATIENT
  Age: 61 Year
  Sex: Male

DRUGS (1)
  1. SANDOSTATIN LAR DEPOT [Suspect]
     Active Substance: OCTREOTIDE ACETATE
     Indication: CARCINOID TUMOUR
     Dosage: 40 MG, QMO (EVERY 28 DAYS)
     Route: 030
     Dates: start: 20110512

REACTIONS (8)
  - Vomiting [Unknown]
  - Fatigue [Recovering/Resolving]
  - Dehydration [Unknown]
  - Blood pressure systolic increased [Unknown]
  - Drug ineffective [Unknown]
  - Nausea [Unknown]
  - Flushing [Not Recovered/Not Resolved]
  - Diarrhoea [Not Recovered/Not Resolved]

NARRATIVE: CASE EVENT DATE: 20140107
